FAERS Safety Report 24208839 (Version 1)
Quarter: 2024Q3

REPORT INFORMATION
  Report Type: Report from Study
  Country: NL (occurrence: NL)
  Receive Date: 20240814
  Receipt Date: 20240814
  Transmission Date: 20241017
  Serious: Yes (Other)
  Sender: NOVARTIS
  Company Number: NL-002147023-NVSC2024NL163640

PATIENT
  Age: 49 Year
  Sex: Female

DRUGS (3)
  1. ILARIS [Suspect]
     Active Substance: CANAKINUMAB
     Indication: Product used for unknown indication
     Dosage: UNK 1.00 X PER MONTH
     Route: 058
     Dates: start: 20240320
  2. ILARIS [Suspect]
     Active Substance: CANAKINUMAB
     Dosage: UNK 1.00 X PER MONTH
     Route: 058
     Dates: start: 20240712
  3. ILARIS [Suspect]
     Active Substance: CANAKINUMAB
     Dosage: UNK 1.00 X PER MONTH
     Route: 058
     Dates: start: 20240809

REACTIONS (1)
  - Pneumonia [Recovering/Resolving]

NARRATIVE: CASE EVENT DATE: 20240807
